FAERS Safety Report 18742126 (Version 3)
Quarter: 2021Q1

REPORT INFORMATION
  Report Type: Spontaneous
  Country: CZ (occurrence: CZ)
  Receive Date: 20210114
  Receipt Date: 20210209
  Transmission Date: 20210419
  Serious: Yes (Other)
  Sender: FDA-Public Use
  Company Number: CZ-MYLANLABS-2020M1101214

PATIENT
  Sex: Female

DRUGS (4)
  1. METOPROLOL. [Interacting]
     Active Substance: METOPROLOL
     Dosage: 50 MILLIGRAM, QD
     Route: 048
     Dates: start: 201212
  2. VENLAFAXINE [Interacting]
     Active Substance: VENLAFAXINE HYDROCHLORIDE
     Indication: PROPHYLAXIS
     Dosage: UNK
     Route: 048
  3. VENLAFAXINE [Interacting]
     Active Substance: VENLAFAXINE HYDROCHLORIDE
     Indication: MIGRAINE
     Dosage: UNK (UP TO DOSE A DOSE OF 75 MG DAILY)
     Dates: start: 201208
  4. METOPROLOL. [Suspect]
     Active Substance: METOPROLOL
     Indication: PRODUCT USED FOR UNKNOWN INDICATION
     Dosage: 200 MILLIGRAM, QD (200 MILLIGRAM, QD)
     Route: 048
     Dates: start: 201101, end: 201208

REACTIONS (8)
  - Medication error [Unknown]
  - Drug interaction [Unknown]
  - Palpitations [Unknown]
  - Blood pressure increased [Recovered/Resolved]
  - Blood pressure decreased [Unknown]
  - Circulatory collapse [Unknown]
  - Off label use [Recovered/Resolved]
  - Migraine [Unknown]

NARRATIVE: CASE EVENT DATE: 2012
